FAERS Safety Report 8569223 (Version 2)
Quarter: 2014Q1

REPORT INFORMATION
  Report Type: Report from Study
  Country: US (occurrence: US)
  Receive Date: 20120518
  Receipt Date: 20140115
  Transmission Date: 20141002
  Serious: Yes (Other)
  Sender: FDA-Public Use
  Company Number: US-ALEXION-A201200577

PATIENT
  Age: 5 Year
  Sex: Male

DRUGS (4)
  1. SOLIRIS [Suspect]
     Indication: HAEMOLYTIC URAEMIC SYNDROME
     Dosage: 600 MG, QW
     Route: 042
     Dates: start: 20111019, end: 2011
  2. SOLIRIS [Suspect]
     Dosage: 600 MG, Q2W
     Route: 042
     Dates: start: 2011
  3. DIURETICS [Suspect]
     Dosage: UNK
     Dates: end: 201203
  4. TACROLIMUS [Suspect]
     Dosage: UNK
     Dates: end: 201203

REACTIONS (4)
  - Renal failure [Recovered/Resolved]
  - Ascites [Unknown]
  - Proteinuria [Unknown]
  - Drug level increased [Recovered/Resolved]
